FAERS Safety Report 18196552 (Version 1)
Quarter: 2020Q3

REPORT INFORMATION
  Report Type: Spontaneous
  Country: US (occurrence: US)
  Receive Date: 20200825
  Receipt Date: 20200825
  Transmission Date: 20201103
  Serious: No
  Sender: FDA-Public Use
  Company Number: US-ALVOGEN-2020-ALVOGEN-108328

PATIENT
  Age: 51 Year
  Sex: Female

DRUGS (1)
  1. GRALISE [Suspect]
     Active Substance: GABAPENTIN
     Indication: DIABETIC AUTONOMIC NEUROPATHY
     Dosage: 3 TABLETS BY MOUTH ONCE DAILY WITH EVENING MEAL
     Route: 048

REACTIONS (4)
  - Thinking abnormal [Unknown]
  - Memory impairment [Unknown]
  - Condition aggravated [Unknown]
  - Speech disorder [Unknown]
